FAERS Safety Report 24062322 (Version 1)
Quarter: 2024Q3

REPORT INFORMATION
  Report Type: Spontaneous
  Country: DE (occurrence: DE)
  Receive Date: 20240708
  Receipt Date: 20240708
  Transmission Date: 20241016
  Serious: Yes (Hospitalization, Other)
  Sender: SANDOZ
  Company Number: DE-MLMSERVICE-20230719-4423656-1

PATIENT
  Age: 63 Year
  Sex: Male

DRUGS (16)
  1. DEXAMETHASONE [Suspect]
     Active Substance: DEXAMETHASONE
     Indication: Pachymeningitis
     Dosage: 16 MG (4 TIMES OVER 2 WEEKS)
     Route: 037
     Dates: start: 20200930, end: 2020
  2. DEXAMETHASONE [Suspect]
     Active Substance: DEXAMETHASONE
     Dosage: 4 MG, INTRAVENTRICULAR
     Route: 065
     Dates: start: 20200918, end: 20200922
  3. DEXAMETHASONE [Suspect]
     Active Substance: DEXAMETHASONE
     Dosage: 4 MG, INTRAVENTRICULAR
     Route: 065
     Dates: start: 20200922, end: 20200924
  4. DEXAMETHASONE [Suspect]
     Active Substance: DEXAMETHASONE
     Dosage: 4 MG, INTRAVENTRICULAR
     Route: 065
     Dates: start: 20200924, end: 20200930
  5. PREDNISOLONE [Suspect]
     Active Substance: PREDNISOLONE
     Indication: Pachymeningitis
     Dosage: QD 2-20 MG/D
     Route: 048
     Dates: start: 2014, end: 2020
  6. TRIAMCINOLONE ACETONIDE [Suspect]
     Active Substance: TRIAMCINOLONE ACETONIDE
     Indication: Pachymeningitis
     Dosage: 40 MG, TID
     Route: 037
  7. CYTARABINE [Concomitant]
     Active Substance: CYTARABINE
     Indication: Pachymeningitis
     Dosage: 40 MG (INTRAVENTRICULAR)
     Route: 042
     Dates: start: 202009
  8. INFLIXIMAB [Concomitant]
     Active Substance: INFLIXIMAB
     Indication: Pachymeningitis
     Dosage: 375 MG, Q3H
     Route: 042
  9. MABTHERA [Concomitant]
     Active Substance: RITUXIMAB
     Indication: Pachymeningitis
     Dosage: 1000 MG, Q12H
     Route: 065
  10. MABTHERA [Concomitant]
     Active Substance: RITUXIMAB
     Dosage: 25 MG
     Route: 065
  11. METHOTREXATE [Concomitant]
     Active Substance: METHOTREXATE
     Indication: Pachymeningitis
     Dosage: 15 MG
     Route: 065
     Dates: start: 202009
  12. MYCOPHENOLATE MOFETIL [Concomitant]
     Active Substance: MYCOPHENOLATE MOFETIL
     Indication: Pachymeningitis
     Dosage: 200 MG
     Route: 065
  13. MYCOPHENOLATE MOFETIL [Concomitant]
     Active Substance: MYCOPHENOLATE MOFETIL
     Dosage: 200 MG, QD
     Route: 065
  14. REMICADE [Concomitant]
     Active Substance: INFLIXIMAB
     Indication: Pachymeningitis
     Dosage: 375 MG, Q3H
     Route: 065
  15. RITUXIMAB [Concomitant]
     Active Substance: RITUXIMAB
     Dosage: 1000 MG, Q12H
     Route: 042
  16. RITUXIMAB [Concomitant]
     Active Substance: RITUXIMAB
     Indication: Pachymeningitis
     Dosage: 25 MG
     Route: 037

REACTIONS (4)
  - Fear [Recovered/Resolved]
  - Hallucination [Recovered/Resolved]
  - Delusion [Recovered/Resolved]
  - Substance-induced psychotic disorder [Recovered/Resolved]

NARRATIVE: CASE EVENT DATE: 20200930
